FAERS Safety Report 13620308 (Version 1)
Quarter: 2017Q2

REPORT INFORMATION
  Report Type: Spontaneous
  Country: US (occurrence: US)
  Receive Date: 20170607
  Receipt Date: 20170607
  Transmission Date: 20170830
  Serious: Yes (Life-Threatening, Hospitalization)
  Sender: FDA-Public Use
  Company Number: US-BEH-2017080947

PATIENT
  Age: 65 Year
  Sex: Male
  Weight: 109.75 kg

DRUGS (35)
  1. PRIVIGEN [Suspect]
     Active Substance: HUMAN IMMUNOGLOBULIN G
     Dosage: UNK
     Route: 042
  2. SOLU-CORTEF [Concomitant]
     Active Substance: HYDROCORTISONE SODIUM SUCCINATE
  3. CELEBREX [Concomitant]
     Active Substance: CELECOXIB
  4. ACETAMINOPHEN. [Concomitant]
     Active Substance: ACETAMINOPHEN
  5. PRAVACHOL [Concomitant]
     Active Substance: PRAVASTATIN SODIUM
  6. MULTIVITAMINS [Concomitant]
     Active Substance: VITAMINS
  7. PRIVIGEN [Suspect]
     Active Substance: HUMAN IMMUNOGLOBULIN G
     Indication: HYPOGAMMAGLOBULINAEMIA
     Dosage: 60 G, EVERY 5 WEEKS
     Route: 042
     Dates: start: 20150130
  8. PROCHLORPERAZINE. [Concomitant]
     Active Substance: PROCHLORPERAZINE
  9. DIPHENHYDRAMINE. [Concomitant]
     Active Substance: DIPHENHYDRAMINE
  10. EPIPEN [Concomitant]
     Active Substance: EPINEPHRINE
  11. FLUTICASONE. [Concomitant]
     Active Substance: FLUTICASONE
  12. ARMOUR THYROID [Concomitant]
     Active Substance: THYROID, PORCINE
  13. SODIUM CHLORIDE. [Concomitant]
     Active Substance: SODIUM CHLORIDE
  14. MONTELUKAST [Concomitant]
     Active Substance: MONTELUKAST SODIUM
  15. AZELASTINE [Concomitant]
     Active Substance: AZELASTINE
  16. RANITIDINE. [Concomitant]
     Active Substance: RANITIDINE
  17. SYMBICORT [Concomitant]
     Active Substance: BUDESONIDE\FORMOTEROL FUMARATE DIHYDRATE
  18. PROAIR HFA [Concomitant]
     Active Substance: ALBUTEROL SULFATE
  19. NEXIUM [Concomitant]
     Active Substance: ESOMEPRAZOLE MAGNESIUM
  20. NORVASC [Concomitant]
     Active Substance: AMLODIPINE BESYLATE
  21. CLONIDINE. [Concomitant]
     Active Substance: CLONIDINE
  22. ALLOPURINOL. [Concomitant]
     Active Substance: ALLOPURINOL
  23. GABAPENTIN. [Concomitant]
     Active Substance: GABAPENTIN
  24. CARAFATE [Concomitant]
     Active Substance: SUCRALFATE
  25. HYDROCORTISONE. [Concomitant]
     Active Substance: HYDROCORTISONE
  26. NORMAL SALINE [Concomitant]
     Active Substance: SODIUM CHLORIDE
  27. DIOVAN [Concomitant]
     Active Substance: VALSARTAN
  28. ROPINIROLE. [Concomitant]
     Active Substance: ROPINIROLE
  29. XOPENEX [Concomitant]
     Active Substance: LEVALBUTEROL HYDROCHLORIDE
  30. CLEOCIN T [Concomitant]
     Active Substance: CLINDAMYCIN PHOSPHATE
  31. FUROSEMIDE. [Concomitant]
     Active Substance: FUROSEMIDE
  32. TRAVATAN Z [Concomitant]
     Active Substance: TRAVOPROST
  33. TESTOSTERONE. [Concomitant]
     Active Substance: TESTOSTERONE
  34. MUCINEX [Concomitant]
     Active Substance: GUAIFENESIN
  35. REQUIP [Concomitant]
     Active Substance: ROPINIROLE HYDROCHLORIDE

REACTIONS (3)
  - Bronchoscopy [Unknown]
  - Pyrexia [Recovered/Resolved]
  - Mechanical ventilation [Recovered/Resolved]

NARRATIVE: CASE EVENT DATE: 20170513
